FAERS Safety Report 5489730-0 (Version None)
Quarter: 2007Q4

REPORT INFORMATION
  Report Type: 
  Country: None (occurrence: None)
  Receive Date: 20071018
  Receipt Date: 20071012
  Transmission Date: 20080405
  Serious: Yes (Other)
  Sender: FDA-Public Use
  Company Number: CA-ASTRAZENECA-2007UW23983

PATIENT
  Age: 43 Year
  Sex: Male

DRUGS (2)
  1. SEROQUEL [Suspect]
     Route: 048
  2. CARBOLITH [Suspect]
     Route: 048

REACTIONS (2)
  - RASH ERYTHEMATOUS [None]
  - SKIN EXFOLIATION [None]
